FAERS Safety Report 15950118 (Version 2)
Quarter: 2019Q2

REPORT INFORMATION
  Report Type: Spontaneous
  Country: US (occurrence: US)
  Receive Date: 20190211
  Receipt Date: 20190416
  Transmission Date: 20190711
  Serious: No
  Sender: FDA-Public Use
  Company Number: US-PFIZER INC-2019050487

PATIENT
  Age: 64 Year
  Sex: Female

DRUGS (2)
  1. AROMASIN [Suspect]
     Active Substance: EXEMESTANE
     Dosage: 25 MG, UNK
  2. AROMASIN [Suspect]
     Active Substance: EXEMESTANE
     Indication: BONE CANCER
     Dosage: 25 MG, DAILY
     Route: 048
     Dates: start: 201812, end: 20181224

REACTIONS (5)
  - Vulvovaginal burning sensation [Recovering/Resolving]
  - Product use in unapproved indication [Unknown]
  - Vulvovaginal pruritus [Recovering/Resolving]
  - Rash erythematous [Recovering/Resolving]
  - Nasopharyngitis [Not Recovered/Not Resolved]

NARRATIVE: CASE EVENT DATE: 201812
